FAERS Safety Report 7367516-X (Version None)
Quarter: 2011Q1

REPORT INFORMATION
  Report Type: 
  Country: None (occurrence: None)
  Receive Date: 20110322
  Receipt Date: 20100917
  Transmission Date: 20110831
  Serious: Yes (Hospitalization, Other)
  Sender: FDA-Public Use
  Company Number: US-BAYER-201027021NA

PATIENT
  Sex: Female
  Weight: 74.83 kg

DRUGS (22)
  1. LORTAB [Concomitant]
     Dosage: UNK
     Route: 048
     Dates: start: 20040517, end: 20040517
  2. YASMIN [Suspect]
     Indication: ORAL CONTRACEPTION
     Route: 048
     Dates: start: 20030101, end: 20040615
  3. ACETAMINOPHEN [Concomitant]
     Dosage: 650 MG, UNK
     Route: 054
     Dates: start: 20040517, end: 20040517
  4. UNCODEABLE ^UNCLASSIFIABLE^ [Concomitant]
     Dosage: 20 MG, UNK
     Route: 042
     Dates: start: 20040516, end: 20040516
  5. PHENERGAN [Concomitant]
     Dosage: 12.5 MG, UNK
     Route: 042
     Dates: start: 20040516, end: 20040516
  6. MAALOX [Concomitant]
     Dosage: 30 ML, UNK
     Route: 048
     Dates: start: 20040517, end: 20040517
  7. PROMETHAZINE [Concomitant]
     Dosage: 25 MG, UNK
     Route: 048
     Dates: start: 20040518, end: 20040518
  8. HYDROCODONE BITARTRATE [Concomitant]
     Dosage: UNK
     Route: 048
     Dates: start: 20040518, end: 20040518
  9. ZANTAC [Concomitant]
     Indication: GASTRIC PH DECREASED
  10. UNCODEABLE ^UNCLASSIFIABLE^ [Concomitant]
     Dosage: UNK
     Route: 048
     Dates: start: 20040516, end: 20040516
  11. AMBIEN [Concomitant]
     Dosage: 5 MG, UNK
     Route: 048
     Dates: start: 20040517, end: 20040517
  12. HYDROMORPHONE HCL [Concomitant]
     Dosage: UNK
     Dates: start: 20040517, end: 20040517
  13. DEMEROL [Concomitant]
     Dosage: UNK
     Route: 042
     Dates: start: 20040517, end: 20040517
  14. YASMIN [Suspect]
     Indication: ACNE
  15. MILK OF MAGNESIA TAB [Concomitant]
     Dosage: 30 ML, UNK
     Route: 048
     Dates: start: 20040517, end: 20040517
  16. COLACE [Concomitant]
     Dosage: 200 MG, UNK
     Route: 048
     Dates: start: 20040517, end: 20040517
  17. LEVAQUIN [Concomitant]
     Dosage: 500 MG, UNK
     Route: 042
     Dates: start: 20040518, end: 20040518
  18. REGLAN [Concomitant]
     Dosage: 10 MG, UNK
     Route: 042
     Dates: start: 20040516, end: 20040516
  19. UNCODEABLE ^UNCLASSIFIABLE^ [Concomitant]
  20. YASMIN [Suspect]
     Indication: PREMENSTRUAL SYNDROME
  21. DILAUDID [Concomitant]
     Indication: PAIN
     Dosage: 0.5 MG, UNK
     Route: 042
     Dates: start: 20040516, end: 20040516
  22. PROMETHAZINE [Concomitant]
     Dosage: UNK
     Route: 042
     Dates: start: 20040518, end: 20040518

REACTIONS (7)
  - VOMITING [None]
  - CHOLECYSTITIS CHRONIC [None]
  - BILE DUCT OBSTRUCTION [None]
  - ABDOMINAL PAIN UPPER [None]
  - CHOLECYSTITIS ACUTE [None]
  - NAUSEA [None]
  - ABDOMINAL PAIN [None]
